FAERS Safety Report 8541828 (Version 6)
Quarter: 2012Q4

REPORT INFORMATION
  Report Type: 
  Country: US (occurrence: US)
  Receive Date: 20120502
  Receipt Date: 20121008
  Transmission Date: 20130627
  Serious: Yes (Hospitalization)
  Sender: FDA-Public Use
  Company Number: US-ACTELION-A-NJ2012-64722

PATIENT
  Age: 64 Year
  Sex: Female

DRUGS (6)
  1. TRACLEER [Suspect]
     Indication: PULMONARY ARTERIAL HYPERTENSION
     Dosage: UNK
     Route: 048
     Dates: start: 2005
  2. SILDENAFIL [Concomitant]
  3. NEXIUM [Concomitant]
  4. DIGOXIN [Concomitant]
  5. ASA [Concomitant]
  6. PLAVIX [Concomitant]

REACTIONS (7)
  - Gastrooesophageal reflux disease [Recovering/Resolving]
  - Chest pain [Recovering/Resolving]
  - Blood potassium increased [Recovering/Resolving]
  - Arterial occlusive disease [Recovering/Resolving]
  - Anaemia [Recovering/Resolving]
  - Transfusion [Recovering/Resolving]
  - Dizziness [Recovering/Resolving]
